FAERS Safety Report 20039761 (Version 1)
Quarter: 2021Q4

REPORT INFORMATION
  Report Type: Spontaneous
  Country: US (occurrence: US)
  Receive Date: 20211106
  Receipt Date: 20211106
  Transmission Date: 20220303
  Serious: Yes (Other)
  Sender: FDA-Public Use
  Company Number: US-NOVARTISTESTPH-NVSC2021US249931

PATIENT
  Sex: Male

DRUGS (11)
  1. PREDNISONE [Suspect]
     Active Substance: PREDNISONE
     Indication: Prostate cancer metastatic
     Route: 065
  2. DOCETAXEL [Concomitant]
     Active Substance: DOCETAXEL
     Indication: Product used for unknown indication
     Dosage: 6 CYCLES
     Route: 065
     Dates: start: 201906, end: 201909
  3. ABIRATERONE [Concomitant]
     Active Substance: ABIRATERONE
     Indication: Product used for unknown indication
     Dosage: UNK
     Route: 065
     Dates: start: 201107, end: 201506
  4. AMITRIPTYLINE HYDROCHLORIDE [Concomitant]
     Active Substance: AMITRIPTYLINE HYDROCHLORIDE
     Indication: Product used for unknown indication
     Dosage: UNK
     Route: 065
     Dates: start: 201107, end: 201506
  5. SIPTASE [Concomitant]
     Indication: Product used for unknown indication
     Dosage: UNK
     Route: 065
     Dates: start: 201506, end: 201511
  6. RADIUM [Concomitant]
     Active Substance: RADIUM
     Indication: Product used for unknown indication
     Dosage: UNK
     Route: 065
     Dates: start: 201506, end: 201511
  7. ENZALUTAMIDE [Concomitant]
     Active Substance: ENZALUTAMIDE
     Indication: Product used for unknown indication
     Dosage: UNK
     Route: 065
     Dates: start: 201511, end: 201911
  8. APALUTAMIDE [Concomitant]
     Active Substance: APALUTAMIDE
     Indication: Product used for unknown indication
     Dosage: UNK
     Route: 065
     Dates: start: 201905, end: 201906
  9. DUOCOTECXIN [Concomitant]
     Indication: Product used for unknown indication
     Dosage: UNK
     Route: 065
     Dates: start: 201906, end: 201909
  10. OLAPARIB [Concomitant]
     Active Substance: OLAPARIB
     Indication: Product used for unknown indication
     Dosage: UNK
     Route: 065
     Dates: start: 202009, end: 202110
  11. OLAPARIB [Concomitant]
     Active Substance: OLAPARIB
     Dosage: UNK
     Route: 065
     Dates: start: 201906, end: 201909

REACTIONS (2)
  - Prostate cancer metastatic [Unknown]
  - Malignant neoplasm progression [Unknown]
